FAERS Safety Report 18833440 (Version 1)
Quarter: 2021Q1

REPORT INFORMATION
  Report Type: Spontaneous
  Country: US (occurrence: US)
  Receive Date: 20210203
  Receipt Date: 20210203
  Transmission Date: 20210419
  Serious: No
  Sender: FDA-Public Use
  Company Number: US-BEH-2021127897

PATIENT
  Sex: Female

DRUGS (18)
  1. INDERAL LA [Concomitant]
     Active Substance: PROPRANOLOL HYDROCHLORIDE
  2. ZANAFLEX [Concomitant]
     Active Substance: TIZANIDINE HYDROCHLORIDE
  3. ABILIFY [Concomitant]
     Active Substance: ARIPIPRAZOLE
  4. NORCO [Concomitant]
     Active Substance: ACETAMINOPHEN\HYDROCODONE BITARTRATE
  5. PROAIR HFA [Concomitant]
     Active Substance: ALBUTEROL SULFATE
  6. LIDOCAINE. [Concomitant]
     Active Substance: LIDOCAINE
  7. MOBIC [Concomitant]
     Active Substance: MELOXICAM
  8. FENTANYL. [Concomitant]
     Active Substance: FENTANYL
  9. KLONOPIN [Concomitant]
     Active Substance: CLONAZEPAM
  10. DEXILANT [Concomitant]
     Active Substance: DEXLANSOPRAZOLE
  11. HIZENTRA [Suspect]
     Active Substance: HUMAN IMMUNOGLOBULIN G
     Indication: SELECTIVE IGG SUBCLASS DEFICIENCY
     Dosage: 6 GRAM, QW
     Route: 058
  12. PRILOSEC [Concomitant]
     Active Substance: OMEPRAZOLE MAGNESIUM
  13. VITAMIN D3 [Concomitant]
     Active Substance: CHOLECALCIFEROL
  14. CLINDAMYCIN HCL [Concomitant]
     Active Substance: CLINDAMYCIN HYDROCHLORIDE
  15. ZANTAC [Concomitant]
     Active Substance: RANITIDINE HYDROCHLORIDE
  16. ZOLOFT [Concomitant]
     Active Substance: SERTRALINE HYDROCHLORIDE
  17. BELSOMRA [Concomitant]
     Active Substance: SUVOREXANT
  18. BUSPIRONE HYDROCHLORIDE. [Concomitant]
     Active Substance: BUSPIRONE HYDROCHLORIDE

REACTIONS (1)
  - Infusion site rash [Unknown]
